FAERS Safety Report 23624505 (Version 1)
Quarter: 2024Q1

REPORT INFORMATION
  Report Type: Spontaneous
  Country: US (occurrence: US)
  Receive Date: 20240313
  Receipt Date: 20240313
  Transmission Date: 20240410
  Serious: Yes (Other)
  Sender: FDA-Public Use
  Company Number: US-ChurchDwight-2024-CDW-00443

PATIENT
  Age: 53 Year
  Sex: Male

DRUGS (1)
  1. SODIUM FLUORIDE [Suspect]
     Active Substance: SODIUM FLUORIDE\SODIUM MONOFLUOROPHOSPHATE
     Indication: Dental cleaning
     Dosage: USED THE SIZE OF A BEAN, ON HER ELECTRIC BRUSH
     Route: 004
     Dates: start: 20240301, end: 20240301

REACTIONS (4)
  - Hypersensitivity [Recovered/Resolved]
  - Tongue discomfort [Recovered/Resolved]
  - Lip swelling [Recovered/Resolved]
  - Swollen tongue [Recovered/Resolved]

NARRATIVE: CASE EVENT DATE: 20240301
